FAERS Safety Report 24054769 (Version 1)
Quarter: 2024Q3

REPORT INFORMATION
  Report Type: Report from Study
  Country: US (occurrence: US)
  Receive Date: 20240705
  Receipt Date: 20240705
  Transmission Date: 20241016
  Serious: Yes (Death)
  Sender: RECORDATI
  Company Number: US-RECORDATI RARE DISEASE INC.-2024003238

PATIENT

DRUGS (2)
  1. ISTURISA [Suspect]
     Active Substance: OSILODROSTAT PHOSPHATE
     Indication: Ectopic ACTH syndrome
     Dosage: 5 MG, BID
     Route: 048
     Dates: start: 20240426
  2. ISTURISA [Suspect]
     Active Substance: OSILODROSTAT PHOSPHATE
     Indication: Off label use

REACTIONS (2)
  - Death [Fatal]
  - Product prescribing issue [Recovered/Resolved]

NARRATIVE: CASE EVENT DATE: 20240101
